FAERS Safety Report 7380987-8 (Version None)
Quarter: 2011Q1

REPORT INFORMATION
  Report Type: 
  Country: None (occurrence: None)
  Receive Date: 20110329
  Receipt Date: 20110321
  Transmission Date: 20110831
  Serious: Yes (Hospitalization, Other)
  Sender: FDA-Public Use
  Company Number: US-TEVA-272327USA

PATIENT
  Age: 63 Year
  Sex: Male
  Weight: 104.42 kg

DRUGS (9)
  1. MULTI-VITAMINS [Concomitant]
     Dates: start: 20040101
  2. SIMVASTATIN [Suspect]
     Indication: HYPERCHOLESTEROLAEMIA
     Route: 048
     Dates: start: 20080615, end: 20110302
  3. INVESTIGATIONAL DRUG [Suspect]
     Indication: RHEUMATOID ARTHRITIS
     Route: 048
     Dates: start: 20100819, end: 20110228
  4. ZOLPIDEM [Concomitant]
     Dates: start: 20110202
  5. METOPROLOL TARTRATE [Concomitant]
     Dates: start: 20100819
  6. FOLIC ACID [Concomitant]
  7. ACETYLSALICYLIC ACID [Concomitant]
     Dates: start: 20080615
  8. AZITHROMYCIN [Concomitant]
     Dates: start: 20110228, end: 20110302
  9. METHOTREXATE SODIUM [Suspect]
     Indication: RHEUMATOID ARTHRITIS
     Route: 048
     Dates: start: 20090915, end: 20110302

REACTIONS (2)
  - LIVER FUNCTION TEST ABNORMAL [None]
  - SMALL CELL LUNG CANCER METASTATIC [None]
